FAERS Safety Report 24712461 (Version 1)
Quarter: 2024Q4

REPORT INFORMATION
  Report Type: Spontaneous
  Country: US (occurrence: None)
  Receive Date: 20241207
  Receipt Date: 20241207
  Transmission Date: 20250114
  Serious: Yes (Other)
  Sender: Public
  Company Number: None

PATIENT
  Age: 53 Year
  Sex: Male
  Weight: 4.5 kg

DRUGS (1)
  1. MUPIROCIN [Suspect]
     Active Substance: MUPIROCIN
     Dates: start: 20241017

REACTIONS (2)
  - Rash [None]
  - Blister [None]

NARRATIVE: CASE EVENT DATE: 20241017
